FAERS Safety Report 11624855 (Version 3)
Quarter: 2015Q4

REPORT INFORMATION
  Report Type: Spontaneous
  Country: US (occurrence: US)
  Receive Date: 20151013
  Receipt Date: 20151016
  Transmission Date: 20160304
  Serious: Yes (Other)
  Sender: FDA-Public Use
  Company Number: US-SA-2015SA113937

PATIENT
  Sex: Female

DRUGS (1)
  1. ICY HOT (MENTHOL) [Suspect]
     Active Substance: MENTHOL
     Dosage: ROUTE: DERMAL?FORM: PATCH

REACTIONS (2)
  - Burns second degree [Unknown]
  - Scar [Unknown]
